FAERS Safety Report 17264155 (Version 2)
Quarter: 2020Q1

REPORT INFORMATION
  Report Type: Spontaneous
  Country: IT (occurrence: IT)
  Receive Date: 20200113
  Receipt Date: 20200121
  Transmission Date: 20200409
  Serious: Yes (Hospitalization)
  Sender: FDA-Public Use
  Company Number: NVSC2020IT003529

PATIENT
  Age: 70 Year
  Sex: Female
  Weight: 60 kg

DRUGS (5)
  1. ACETYLSALICYLIC ACID [Suspect]
     Active Substance: ASPIRIN
     Indication: PROPHYLAXIS
     Dosage: 100 MG, QD (FARMACI INTERAGENTI)
     Route: 048
     Dates: end: 20190908
  2. KETOPROFENE SALE DI LISINA DOC [Interacting]
     Active Substance: KETOPROFEN LYSINE
     Indication: ANTIINFLAMMATORY THERAPY
     Dosage: 80 MG, PRN (FARMACI INTERAGENTI)
     Route: 048
     Dates: start: 20190907, end: 20190907
  3. OKI [Suspect]
     Active Substance: KETOPROFEN LYSINE
     Indication: ANTIINFLAMMATORY THERAPY
     Dosage: 80 MG
     Route: 048
     Dates: start: 20190907, end: 20190907
  4. CLOPIDOGREL [Interacting]
     Active Substance: CLOPIDOGREL BISULFATE
     Indication: PROPHYLAXIS
     Dosage: 1 DF, QD (FARMACI INTERAGENTI)
     Route: 048
     Dates: end: 20190908
  5. CLEXANE [Interacting]
     Active Substance: ENOXAPARIN SODIUM
     Indication: THROMBOSIS PROPHYLAXIS
     Dosage: 1 DF, QD (FARMACI INTERAGENTI)
     Route: 058
     Dates: start: 20190801

REACTIONS (4)
  - Drug interaction [Recovering/Resolving]
  - Anaemia [Recovering/Resolving]
  - Melaena [Recovering/Resolving]
  - Haematemesis [Recovering/Resolving]

NARRATIVE: CASE EVENT DATE: 20190908
